FAERS Safety Report 4447155-0 (Version None)
Quarter: 2004Q3

REPORT INFORMATION
  Report Type: 
  Country: None (occurrence: None)
  Receive Date: 20040813
  Receipt Date: 20040503
  Transmission Date: 20050211
  Serious: No
  Sender: FDA-Public Use
  Company Number: S04-USA-02964-01

PATIENT
  Age: 89 Year
  Sex: Male

DRUGS (2)
  1. NAMENDA [Suspect]
     Indication: MEMORY IMPAIRMENT
     Dosage: 5 MG QD PO
     Route: 048
  2. THYROID REPLACEMENT (NOS) [Concomitant]

REACTIONS (1)
  - AGGRESSION [None]
